FAERS Safety Report 4480147-4 (Version None)
Quarter: 2004Q4

REPORT INFORMATION
  Report Type: 
  Country: None (occurrence: None)
  Receive Date: 20041020
  Receipt Date: 20041015
  Transmission Date: 20050328
  Serious: Yes (Hospitalization)
  Sender: FDA-Public Use
  Company Number: GB-MERCK-0410GBR00179

PATIENT
  Age: 74 Year
  Sex: Female

DRUGS (5)
  1. FOSAMAX [Suspect]
     Indication: OSTEOPOROSIS
     Route: 048
     Dates: end: 20040922
  2. ASPIRIN [Suspect]
     Indication: PROPHYLAXIS
     Route: 065
     Dates: end: 20040922
  3. ATENOLOL [Concomitant]
     Indication: HYPERTENSION
     Route: 048
  4. PERINDOPRIL [Concomitant]
     Indication: HYPERTENSION
     Route: 048
  5. ACETAMINOPHEN [Concomitant]
     Route: 048

REACTIONS (4)
  - ENDOSCOPY SMALL INTESTINE ABNORMAL [None]
  - HAEMATEMESIS [None]
  - MELAENA [None]
  - OESOPHAGEAL ULCER [None]
